FAERS Safety Report 8165446-7 (Version None)
Quarter: 2012Q1

REPORT INFORMATION
  Report Type: 
  Country: None (occurrence: None)
  Receive Date: 20120223
  Receipt Date: 20120223
  Transmission Date: 20120608
  Serious: Yes (Death, Life-Threatening, Hospitalization)
  Sender: FDA-Public Use
  Company Number: None

PATIENT
  Age: 47 Year
  Sex: Female

DRUGS (20)
  1. PEGYLATED INTERFERON ALPHA 2B [Concomitant]
  2. HYDROXYZINE [Concomitant]
  3. TRIAMCINOLONE [Concomitant]
  4. LASIX [Concomitant]
  5. RED BLOOD CELLS [Concomitant]
  6. TELAPREVIR 375 MG TABLET [Suspect]
     Indication: HEPATITIS C
     Dosage: 750 MG BID ORALLY
     Route: 048
     Dates: start: 20110816
  7. TELAPREVIR 375 MG TABLET [Suspect]
     Indication: HEPATITIS C
     Dosage: 750 MG BID ORALLY
     Route: 048
     Dates: start: 20111021
  8. MULTIPLE AUTONOMIC DRUGS [Concomitant]
  9. DIPHENHYDRAMINE HCL [Concomitant]
  10. PEPCID [Concomitant]
  11. PROTONIX [Concomitant]
  12. SODIUM BICARBONATE [Concomitant]
  13. PLATELETS [Concomitant]
  14. PROCRIT [Concomitant]
  15. AVELOX [Concomitant]
  16. LOVENOX [Concomitant]
  17. RIBAVIRIN [Concomitant]
  18. VANCOMYCIN [Concomitant]
  19. POTASSIUM CHLORIDE [Concomitant]
  20. NEUPOGEN [Concomitant]

REACTIONS (11)
  - LEUKOPENIA [None]
  - DRUG RASH WITH EOSINOPHILIA AND SYSTEMIC SYMPTOMS [None]
  - ANAEMIA [None]
  - CARDIO-RESPIRATORY ARREST [None]
  - NEUTROPENIA [None]
  - GENERAL PHYSICAL HEALTH DETERIORATION [None]
  - ASTHENIA [None]
  - CARDIOGENIC SHOCK [None]
  - THROMBOCYTOPENIA [None]
  - RENAL FAILURE ACUTE [None]
  - VENTRICULAR FIBRILLATION [None]
